FAERS Safety Report 7988269-8 (Version None)
Quarter: 2011Q4

REPORT INFORMATION
  Report Type: 
  Country: None (occurrence: None)
  Receive Date: 20111216
  Receipt Date: 20110923
  Transmission Date: 20120403
  Serious: No
  Sender: FDA-Public Use
  Company Number: US-ABBOTT-11P-163-0857824-00

PATIENT
  Sex: Female
  Weight: 71.732 kg

DRUGS (6)
  1. LORAZEPAM [Concomitant]
     Indication: PRODUCT USED FOR UNKNOWN INDICATION
     Dates: start: 19910101
  2. PROMETRIUM [Suspect]
     Dosage: DAYS 16-30
     Dates: start: 20110921
  3. ZYRTEC [Concomitant]
     Indication: PRODUCT USED FOR UNKNOWN INDICATION
     Dates: start: 20000101
  4. PREMARIN [Concomitant]
     Indication: HORMONE REPLACEMENT THERAPY
  5. PROMETRIUM [Suspect]
     Indication: HORMONE REPLACEMENT THERAPY
     Dates: start: 20010101
  6. PROMETRIUM [Suspect]
     Dosage: DAYS 16-30
     Dates: start: 20060101, end: 20110820

REACTIONS (2)
  - RASH PRURITIC [None]
  - RASH PAPULAR [None]
